FAERS Safety Report 6771603-4 (Version None)
Quarter: 2010Q2

REPORT INFORMATION
  Report Type: 
  Country: None (occurrence: None)
  Receive Date: 20100616
  Receipt Date: 20100603
  Transmission Date: 20101027
  Serious: Yes (Other)
  Sender: FDA-Public Use
  Company Number: PHFR2010GB00890

PATIENT
  Sex: Male

DRUGS (1)
  1. ZOMETA [Suspect]
     Dosage: UNK

REACTIONS (4)
  - BONE DENSITY DECREASED [None]
  - BONE DISORDER [None]
  - JAW DISORDER [None]
  - OSTEONECROSIS OF JAW [None]
